FAERS Safety Report 7985502-3 (Version None)
Quarter: 2011Q4

REPORT INFORMATION
  Report Type: 
  Country: None (occurrence: None)
  Receive Date: 20111216
  Receipt Date: 20111207
  Transmission Date: 20120403
  Serious: Yes (Hospitalization, Other)
  Sender: FDA-Public Use
  Company Number: JP-ROCHE-797952

PATIENT
  Sex: Female
  Weight: 39 kg

DRUGS (12)
  1. CARVEDILOL [Concomitant]
     Indication: CARDIOMYOPATHY
     Route: 048
     Dates: start: 20100812, end: 20110711
  2. LASIX [Concomitant]
     Route: 048
     Dates: start: 20061201, end: 20110610
  3. VANCOMYCIN HYCHLORIDE [Concomitant]
     Indication: ENDOCARDITIS
     Route: 041
     Dates: start: 20110518, end: 20110608
  4. ASPIRIN [Suspect]
     Indication: HEART VALVE OPERATION
     Route: 048
     Dates: start: 20110509, end: 20110704
  5. LASIX [Concomitant]
     Route: 048
  6. LASIX [Concomitant]
     Route: 048
  7. LASIX [Concomitant]
     Indication: CARDIAC FAILURE CHRONIC
     Route: 042
  8. HEPARIN [Concomitant]
     Indication: THROMBOSIS PROPHYLAXIS
     Dosage: DOSE- 7000 UNITS
     Route: 041
     Dates: start: 20110611, end: 20110705
  9. AMIODARONE HCL [Concomitant]
     Indication: CARDIOMYOPATHY
     Route: 048
  10. LASIX [Concomitant]
     Route: 042
     Dates: start: 20110611, end: 20110801
  11. ROCEPHIN [Suspect]
     Indication: ENDOCARDITIS
     Route: 042
     Dates: start: 20110518, end: 20110629
  12. FRAGMIN [Concomitant]
     Dates: start: 20110706, end: 20110805

REACTIONS (2)
  - AGRANULOCYTOSIS [None]
  - TOXIC ENCEPHALOPATHY [None]
